FAERS Safety Report 4791563-5 (Version None)
Quarter: 2005Q4

REPORT INFORMATION
  Report Type: 
  Country: None (occurrence: None)
  Receive Date: 20051007
  Receipt Date: 20050310
  Transmission Date: 20060501
  Serious: Yes (Other)
  Sender: FDA-Public Use
  Company Number: US-BRISTOL-MYERS SQUIBB COMPANY-12893822

PATIENT
  Age: 57 Year
  Sex: Male
  Weight: 82 kg

DRUGS (3)
  1. AVAPRO [Suspect]
     Indication: HYPERTENSION
     Route: 048
     Dates: end: 20050312
  2. LOPID [Concomitant]
  3. MEVACOR [Concomitant]
     Dosage: QHS

REACTIONS (1)
  - ANGIONEUROTIC OEDEMA [None]
